FAERS Safety Report 5909912-0 (Version None)
Quarter: 2008Q4

REPORT INFORMATION
  Report Type: 
  Country: None (occurrence: None)
  Receive Date: 20081003
  Receipt Date: 20081003
  Transmission Date: 20090506
  Serious: Yes (Other)
  Sender: FDA-Public Use
  Company Number: None

PATIENT
  Age: 52 Year
  Sex: Female
  Weight: 56.246 kg

DRUGS (11)
  1. ATENOLOL [Suspect]
  2. CLONIPINE [Suspect]
  3. FOLLIC ACID [Concomitant]
  4. APRESOLINE [Concomitant]
  5. LISINOPRIL [Concomitant]
  6. RENAGEL [Concomitant]
  7. REGLAN [Concomitant]
  8. SYNTHROID [Concomitant]
  9. TYLENOL 3 WITH CODEINE [Concomitant]
  10. NORVASC [Concomitant]
  11. COMPAZINE [Concomitant]

REACTIONS (2)
  - FEAR [None]
  - HALLUCINATION, VISUAL [None]
